FAERS Safety Report 13540351 (Version 1)
Quarter: 2017Q2

REPORT INFORMATION
  Report Type: Spontaneous
  Country: US (occurrence: US)
  Receive Date: 20170512
  Receipt Date: 20170512
  Transmission Date: 20170830
  Serious: Yes (Other)
  Sender: FDA-Public Use
  Company Number: PHHY2017US066556

PATIENT
  Age: 21 Year
  Sex: Male

DRUGS (18)
  1. OLANZAPINE. [Suspect]
     Active Substance: OLANZAPINE
     Indication: AGITATION
     Dosage: 20 MG, UNK
     Route: 030
  2. OLANZAPINE. [Suspect]
     Active Substance: OLANZAPINE
     Indication: HALLUCINATION
  3. OLANZAPINE. [Suspect]
     Active Substance: OLANZAPINE
     Indication: PARANOIA
  4. LORAZEPAM. [Suspect]
     Active Substance: LORAZEPAM
     Indication: AGITATION
     Dosage: 6 MG, UNK
     Route: 030
  5. LORAZEPAM. [Suspect]
     Active Substance: LORAZEPAM
     Indication: HALLUCINATION
  6. BENZTROPINE [Suspect]
     Active Substance: BENZTROPINE
     Indication: AGITATION
     Dosage: 1 MG, UNK
     Route: 030
  7. BENZTROPINE [Suspect]
     Active Substance: BENZTROPINE
     Indication: PARANOIA
  8. CHLORPROMAZINE. [Suspect]
     Active Substance: CHLORPROMAZINE
     Indication: HALLUCINATION
  9. LORAZEPAM. [Suspect]
     Active Substance: LORAZEPAM
     Indication: PARANOIA
  10. HALOPERIDOL. [Suspect]
     Active Substance: HALOPERIDOL
     Indication: PARANOIA
  11. HALOPERIDOL. [Suspect]
     Active Substance: HALOPERIDOL
     Indication: HALLUCINATION
  12. CHLORPROMAZINE. [Suspect]
     Active Substance: CHLORPROMAZINE
     Indication: PARANOIA
  13. HALOPERIDOL. [Suspect]
     Active Substance: HALOPERIDOL
     Indication: AGITATION
     Dosage: 30 UNK, UNK
     Route: 030
  14. CHLORPROMAZINE. [Suspect]
     Active Substance: CHLORPROMAZINE
     Indication: AGITATION
     Dosage: 25 MG, UNK
     Route: 030
  15. BENZTROPINE [Suspect]
     Active Substance: BENZTROPINE
     Indication: HALLUCINATION
  16. DEXTROAMPHETAMINE. [Concomitant]
     Active Substance: DEXTROAMPHETAMINE
     Indication: ATTENTION DEFICIT/HYPERACTIVITY DISORDER
     Dosage: UNK UNK, QD
     Route: 065
  17. CANNABIS [Concomitant]
     Active Substance: CANNABIS SATIVA SUBSP. INDICA TOP
     Indication: PRODUCT USED FOR UNKNOWN INDICATION
     Dosage: UNK UNK, TID
     Route: 065
  18. AMPHETAMINE [Concomitant]
     Active Substance: AMPHETAMINE
     Indication: ATTENTION DEFICIT/HYPERACTIVITY DISORDER
     Dosage: UNK UNK, QD
     Route: 065

REACTIONS (4)
  - Condition aggravated [Unknown]
  - Paranoia [Unknown]
  - Hallucination [Unknown]
  - Agitation [Unknown]
